FAERS Safety Report 4533725-8 (Version None)
Quarter: 2004Q4

REPORT INFORMATION
  Report Type: 
  Country: None (occurrence: None)
  Receive Date: 20041221
  Receipt Date: 20041213
  Transmission Date: 20050328
  Serious: Yes (Hospitalization)
  Sender: FDA-Public Use
  Company Number: GB-GLAXOSMITHKLINE-B0361453A

PATIENT
  Age: 73 Year
  Sex: Female
  Weight: 58 kg

DRUGS (12)
  1. CO-AMOXICLAV [Suspect]
     Indication: LOWER RESPIRATORY TRACT INFECTION
     Dosage: 1.2G UNKNOWN
     Route: 042
     Dates: start: 20041128
  2. COMBIVENT [Concomitant]
  3. BECOTIDE [Concomitant]
  4. PREDNISOLONE [Concomitant]
     Dosage: 40MG PER DAY
     Route: 048
  5. FUROSEMIDE [Concomitant]
     Dosage: 80MG PER DAY
     Route: 048
  6. LEVOTHYROXINE SODIUM [Concomitant]
     Dosage: 150MCG PER DAY
     Route: 048
  7. ASPIRIN [Concomitant]
     Dosage: 75MG PER DAY
     Route: 065
  8. ATORVASTATIN [Concomitant]
     Dosage: 10MG PER DAY
     Route: 065
  9. ISOSORBIDE MONONITRATE [Concomitant]
     Dosage: 60MG PER DAY
     Route: 065
  10. LISINOPRIL [Concomitant]
     Dosage: 10MG PER DAY
     Route: 065
  11. GLICLAZIDE [Concomitant]
     Dosage: 40MG PER DAY
     Route: 065
  12. AMINOPHYLLINE [Concomitant]
     Dosage: 225MG TWICE PER DAY
     Route: 065

REACTIONS (1)
  - PERIORBITAL OEDEMA [None]
